FAERS Safety Report 19285120 (Version 3)
Quarter: 2021Q2

REPORT INFORMATION
  Report Type: Spontaneous
  Country: PL (occurrence: PL)
  Receive Date: 20210521
  Receipt Date: 20210625
  Transmission Date: 20210717
  Serious: Yes (Hospitalization)
  Sender: FDA-Public Use
  Company Number: PL-BAUSCH-BL-2021-016909

PATIENT
  Age: 76 Year
  Sex: Female

DRUGS (46)
  1. FENTANYL. [Concomitant]
     Active Substance: FENTANYL
     Dosage: 112.5 (1.5 PATCHES OF 75 UG/H EACH) TO 75 UG/H (1 PATCH)
     Route: 062
  2. MORPHINE [Concomitant]
     Active Substance: MORPHINE
     Indication: MYALGIA
  3. ALCRENO [Concomitant]
     Active Substance: QUETIAPINE
     Indication: PRODUCT USED FOR UNKNOWN INDICATION
     Dosage: FREQUENCY: AT BEDTIME
  4. TORECAN [Concomitant]
     Active Substance: THIETHYLPERAZINE MALATE
     Indication: PRODUCT USED FOR UNKNOWN INDICATION
     Route: 048
  5. STRUCTUM [Concomitant]
     Indication: PRODUCT USED FOR UNKNOWN INDICATION
     Route: 048
  6. TRAUMON [Concomitant]
     Active Substance: ETOFENAMATE
     Indication: PRODUCT USED FOR UNKNOWN INDICATION
     Route: 061
  7. FENTANYL. [Concomitant]
     Active Substance: FENTANYL
     Route: 045
  8. LORAZEPAM. [Concomitant]
     Active Substance: LORAZEPAM
     Indication: MIXED ANXIETY AND DEPRESSIVE DISORDER
     Dates: start: 2013
  9. PREGABALIN. [Concomitant]
     Active Substance: PREGABALIN
     Indication: PRODUCT USED FOR UNKNOWN INDICATION
     Dosage: DOSE: 75 MG IN THE MORNING AND 75 MG IN THE EVENING
  10. CAPTOPRIL. [Concomitant]
     Active Substance: CAPTOPRIL
     Indication: PRODUCT USED FOR UNKNOWN INDICATION
     Dosage: FREQUENCY: AS NEEDED
     Route: 048
  11. VITAMIN D3 [Concomitant]
     Active Substance: CHOLECALCIFEROL
     Indication: PRODUCT USED FOR UNKNOWN INDICATION
     Dosage: 4,000 U 1X1
     Route: 048
  12. MIZODIN [Concomitant]
     Indication: PRODUCT USED FOR UNKNOWN INDICATION
     Dosage: 2 X HALF TABLET
     Route: 048
  13. ULGIX WZDECIA [Concomitant]
     Indication: PRODUCT USED FOR UNKNOWN INDICATION
     Route: 048
  14. AMITRIPTYLINE [Suspect]
     Active Substance: AMITRIPTYLINE
     Indication: PRODUCT USED FOR UNKNOWN INDICATION
     Route: 065
  15. EFFENTORA [Concomitant]
     Active Substance: FENTANYL CITRATE
     Dosage: REDUCED TO 1 TABLET PER DAY
     Route: 002
  16. TIANESAL [Concomitant]
     Active Substance: TIANEPTINE SODIUM
     Indication: MIXED ANXIETY AND DEPRESSIVE DISORDER
  17. INHIBACE [Concomitant]
     Active Substance: CILAZAPRIL ANHYDROUS
     Indication: PRODUCT USED FOR UNKNOWN INDICATION
     Route: 048
  18. KALIPOZ?PROLONGATUM [Concomitant]
     Active Substance: POTASSIUM CHLORIDE
     Indication: PRODUCT USED FOR UNKNOWN INDICATION
     Route: 048
  19. CHOLESTEROL HERBAL PREPARATION [Concomitant]
     Indication: PRODUCT USED FOR UNKNOWN INDICATION
     Route: 048
  20. UROSEPT [Concomitant]
     Indication: PRODUCT USED FOR UNKNOWN INDICATION
     Route: 048
  21. FLEGAMINA [Concomitant]
     Active Substance: BROMHEXINE HYDROCHLORIDE
     Indication: PRODUCT USED FOR UNKNOWN INDICATION
     Route: 048
  22. HYDROXYZINE [Suspect]
     Active Substance: HYDROXYZINE HYDROCHLORIDE
     Indication: PRODUCT USED FOR UNKNOWN INDICATION
     Dosage: AT BEDTIME
     Route: 065
  23. SERTRALINE [Concomitant]
     Active Substance: SERTRALINE HYDROCHLORIDE
     Indication: MIXED ANXIETY AND DEPRESSIVE DISORDER
     Dates: start: 2013
  24. OXYCODONE [Concomitant]
     Active Substance: OXYCODONE
     Indication: MYALGIA
  25. LUTEIN [Concomitant]
     Active Substance: LUTEIN
     Indication: PRODUCT USED FOR UNKNOWN INDICATION
     Route: 048
  26. ULGIX LAXI [Concomitant]
     Indication: PRODUCT USED FOR UNKNOWN INDICATION
     Route: 048
  27. FENTANYL. [Concomitant]
     Active Substance: FENTANYL
     Dosage: DOSE: 400 UG/H (4 PATCHES 100 UG/H EACH EVERY 72H)
     Route: 062
  28. FENTANYL. [Concomitant]
     Active Substance: FENTANYL
     Dosage: 75 UG/H TO 3/4 OF THE PATCH AND1/2 A PATCH
     Route: 062
  29. TAPENTADOL [Concomitant]
     Active Substance: TAPENTADOL
     Indication: MYALGIA
  30. NITERNDYPINA EGIS [Concomitant]
     Indication: PRODUCT USED FOR UNKNOWN INDICATION
     Dosage: 1 X HALF TABLET
     Route: 048
  31. MILURIT [Concomitant]
     Active Substance: ALLOPURINOL
     Indication: PRODUCT USED FOR UNKNOWN INDICATION
     Dosage: 1 X HALF TABLET
     Route: 048
  32. RENNIE [Concomitant]
     Indication: PRODUCT USED FOR UNKNOWN INDICATION
     Route: 048
  33. EFFENTORA [Concomitant]
     Active Substance: FENTANYL CITRATE
     Indication: MYALGIA
     Route: 002
  34. EFFENTORA [Concomitant]
     Active Substance: FENTANYL CITRATE
     Route: 002
  35. DIURESIN SR [Concomitant]
     Active Substance: INDAPAMIDE
     Indication: PRODUCT USED FOR UNKNOWN INDICATION
     Route: 048
  36. DUSPATALIN RETARD [Concomitant]
     Indication: PRODUCT USED FOR UNKNOWN INDICATION
     Route: 048
  37. VENLAFAXINE [Suspect]
     Active Substance: VENLAFAXINE HYDROCHLORIDE
     Indication: PRODUCT USED FOR UNKNOWN INDICATION
     Route: 065
  38. CHLORPROTHIXENE [Suspect]
     Active Substance: CHLORPROTHIXENE
     Indication: MIXED ANXIETY AND DEPRESSIVE DISORDER
     Route: 065
  39. BISOCARD [Concomitant]
     Active Substance: BISOPROLOL
     Indication: PRODUCT USED FOR UNKNOWN INDICATION
     Dosage: 1 X HALF TABLET
     Route: 048
  40. MEMOTROPIL [Concomitant]
     Active Substance: PIRACETAM
     Indication: PRODUCT USED FOR UNKNOWN INDICATION
     Route: 048
  41. NO?SPA FORTE [Concomitant]
     Active Substance: DROTAVERINE HYDROCHLORIDE
     Indication: PRODUCT USED FOR UNKNOWN INDICATION
     Route: 048
  42. FENTANYL. [Concomitant]
     Active Substance: FENTANYL
     Indication: MYALGIA
     Dosage: DOSE: 400 UG/H (4 PATCHES 100 UG/H EVERY 3 DAYS)
     Route: 062
     Dates: start: 201810
  43. FENTANYL. [Concomitant]
     Active Substance: FENTANYL
     Dosage: DOSE: 150 UG/H?1 PATCH EVERY 72H
     Route: 062
  44. PREGABALIN. [Concomitant]
     Active Substance: PREGABALIN
  45. ALCRENO [Concomitant]
     Active Substance: QUETIAPINE
     Dosage: FREQUENCY: AT BEDTIME
  46. LIOTON [Concomitant]
     Indication: PRODUCT USED FOR UNKNOWN INDICATION
     Route: 061

REACTIONS (2)
  - Pain [Not Recovered/Not Resolved]
  - Drug intolerance [Unknown]
